FAERS Safety Report 7598729-X (Version None)
Quarter: 2011Q3

REPORT INFORMATION
  Report Type: 
  Country: None (occurrence: None)
  Receive Date: 20110711
  Receipt Date: 20110630
  Transmission Date: 20111222
  Serious: Yes (Hospitalization)
  Sender: FDA-Public Use
  Company Number: 2008BI008536

PATIENT
  Age: 49 Year
  Sex: Female

DRUGS (7)
  1. NAPROSYN [Concomitant]
     Indication: PRODUCT USED FOR UNKNOWN INDICATION
  2. IV STEROIDS [Concomitant]
     Indication: PRODUCT USED FOR UNKNOWN INDICATION
     Route: 042
     Dates: start: 20050221, end: 20050224
  3. AVONEX [Suspect]
     Indication: MULTIPLE SCLEROSIS
     Route: 030
     Dates: start: 20010817, end: 20030101
  4. AVONEX [Suspect]
     Route: 030
     Dates: start: 20030101, end: 20101217
  5. VESICARE [Concomitant]
     Indication: PRODUCT USED FOR UNKNOWN INDICATION
  6. TYLENOL-500 [Concomitant]
     Indication: PRODUCT USED FOR UNKNOWN INDICATION
  7. 4-AMINOPURINE [Concomitant]
     Indication: PRODUCT USED FOR UNKNOWN INDICATION

REACTIONS (2)
  - ROAD TRAFFIC ACCIDENT [None]
  - OPTIC NEUROPATHY [None]
